FAERS Safety Report 6663695-8 (Version None)
Quarter: 2010Q2

REPORT INFORMATION
  Report Type: 
  Country: None (occurrence: None)
  Receive Date: 20100401
  Receipt Date: 20081006
  Transmission Date: 20101027
  Serious: Yes (Other)
  Sender: FDA-Public Use
  Company Number: RU-SANOFI-AVENTIS-2010SA018301

PATIENT
  Age: 53 Year
  Sex: Female

DRUGS (30)
  1. FLUDARABINE PHOSPHATE [Suspect]
     Indication: NON-HODGKIN'S LYMPHOMA
     Route: 048
     Dates: start: 20080509, end: 20080511
  2. FLUDARABINE PHOSPHATE [Suspect]
     Route: 048
     Dates: start: 20080605, end: 20080607
  3. FLUDARABINE PHOSPHATE [Suspect]
     Route: 048
     Dates: start: 20080702, end: 20080704
  4. FLUDARABINE PHOSPHATE [Suspect]
     Route: 048
     Dates: start: 20080801, end: 20080803
  5. FLUDARABINE PHOSPHATE [Suspect]
     Route: 048
     Dates: start: 20080828, end: 20080830
  6. FLUDARABINE PHOSPHATE [Suspect]
     Route: 048
     Dates: start: 20080928, end: 20080930
  7. CYCLOPHOSPHAMIDE [Suspect]
     Indication: NON-HODGKIN'S LYMPHOMA
     Route: 042
     Dates: start: 20080509, end: 20080511
  8. CYCLOPHOSPHAMIDE [Suspect]
     Route: 042
     Dates: start: 20080605, end: 20080607
  9. CYCLOPHOSPHAMIDE [Suspect]
     Route: 042
     Dates: start: 20080702, end: 20080704
  10. CYCLOPHOSPHAMIDE [Suspect]
     Route: 042
     Dates: start: 20080801, end: 20080803
  11. CYCLOPHOSPHAMIDE [Suspect]
     Route: 042
     Dates: start: 20080828, end: 20080830
  12. CYCLOPHOSPHAMIDE [Suspect]
     Route: 042
     Dates: start: 20080928, end: 20080930
  13. BISEPTOL [Concomitant]
     Indication: INFECTION PROPHYLAXIS
     Route: 048
     Dates: start: 20080508, end: 20080515
  14. BISEPTOL [Concomitant]
     Route: 048
     Dates: start: 20080605, end: 20080608
  15. BISEPTOL [Concomitant]
     Route: 048
     Dates: start: 20080601, end: 20080706
  16. BISEPTOL [Concomitant]
     Route: 048
     Dates: start: 20080728, end: 20080804
  17. BISEPTOL [Concomitant]
     Route: 048
     Dates: start: 20080825, end: 20080901
  18. BISEPTOL [Concomitant]
     Route: 048
     Dates: start: 20080925, end: 20081006
  19. ALLOPURINOL [Concomitant]
     Indication: PROPHYLAXIS
     Route: 048
     Dates: start: 20080505, end: 20080515
  20. ALLOPURINOL [Concomitant]
     Route: 048
     Dates: start: 20080602, end: 20080609
  21. ALLOPURINOL [Concomitant]
     Route: 048
     Dates: start: 20080601, end: 20080706
  22. ALLOPURINOL [Concomitant]
     Route: 048
     Dates: start: 20080728, end: 20080804
  23. ALLOPURINOL [Concomitant]
     Route: 048
     Dates: start: 20080825, end: 20080901
  24. ALLOPURINOL [Concomitant]
     Route: 048
     Dates: start: 20080923, end: 20081003
  25. METOCLOPRAMIDE [Concomitant]
     Route: 048
     Dates: start: 20080508, end: 20080511
  26. METOCLOPRAMIDE [Concomitant]
     Route: 048
     Dates: start: 20080702, end: 20080704
  27. GRISETIN [Concomitant]
     Route: 048
     Dates: start: 20080605, end: 20080607
  28. DOMPERIDONE [Concomitant]
     Route: 048
     Dates: start: 20080828, end: 20080830
  29. PREDNISOLONE [Concomitant]
     Indication: NON-HODGKIN'S LYMPHOMA
     Route: 048
     Dates: start: 20080926, end: 20080930
  30. ALL OTHER THERAPEUTIC PRODUCTS [Concomitant]
     Indication: INFECTION PROPHYLAXIS
     Route: 042
     Dates: start: 20081008, end: 20081013

REACTIONS (3)
  - AGRANULOCYTOSIS [None]
  - HEPATITIS TOXIC [None]
  - LEUKOPENIA [None]
